FAERS Safety Report 9496801 (Version 1)
Quarter: 2013Q3

REPORT INFORMATION
  Report Type: Spontaneous
  Country: CA (occurrence: CA)
  Receive Date: 20130904
  Receipt Date: 20130904
  Transmission Date: 20140515
  Serious: Yes (Hospitalization)
  Sender: FDA-Public Use
  Company Number: CA-009507513-1309CAN001557

PATIENT
  Age: 28 Year
  Sex: Female

DRUGS (4)
  1. VICTRELIS [Suspect]
     Indication: HEPATITIS C
     Dosage: 800 MICROGRAM, TID
     Dates: start: 20120808
  2. PEGASYS [Suspect]
     Indication: HEPATITIS C
     Dosage: 180 MICROGRAM, QW
     Route: 058
     Dates: start: 20120606
  3. RIBAVIRIN [Suspect]
     Indication: HEPATITIS C
     Dosage: 800 MG, QD
     Route: 048
     Dates: start: 20120606
  4. CELEXA [Concomitant]
     Indication: PRODUCT USED FOR UNKNOWN INDICATION
     Dosage: 40 MG, QD
     Route: 048
     Dates: start: 20121010

REACTIONS (1)
  - Staphylococcal bacteraemia [Unknown]
